FAERS Safety Report 6934799-7 (Version None)
Quarter: 2010Q3

REPORT INFORMATION
  Report Type: 
  Country: None (occurrence: None)
  Receive Date: 20100820
  Receipt Date: 20100805
  Transmission Date: 20110219
  Serious: Yes (Other)
  Sender: FDA-Public Use
  Company Number: PHHY2010US51848

PATIENT
  Sex: Female

DRUGS (29)
  1. RECLAST [Suspect]
     Dosage: 5 MG
     Route: 042
     Dates: start: 20100802
  2. ADVAIR DISKUS 100/50 [Concomitant]
     Dosage: INHALE 1 PUFF TWICE DAILY. RINSE MOUTH AFTER USE
  3. ALBUTEROL SULFATE [Concomitant]
     Dosage: INHALE 2 PUFFS FOUR TIMES DAILY AS DIRECTED
  4. ALPRAZOLAM [Concomitant]
     Dosage: 0.25 MG, TID,AS NEEDED
  5. AMOXICILLIN [Concomitant]
     Dosage: 500MG
  6. ASPIRINE [Concomitant]
     Dosage: 81 MG, 1 CHEW QD
     Route: 048
  7. ATARAX [Concomitant]
     Dosage: 25 MG, QID, AS NEEDED
  8. CHANTIX [Concomitant]
     Dosage: 1 MG, BID
  9. CHANTIX [Concomitant]
     Dosage: 0.5MGX11 AND1MGX42 TABLET
  10. CIPROFLOXACIN [Concomitant]
     Dosage: 500 MG, Q12H
  11. ALBOZ-2X [Concomitant]
  12. CYMBALTA [Concomitant]
     Dosage: 60 MG, BID
  13. DILAUDID [Concomitant]
     Dosage: 8 MG,EVERY 3 HOURS PRN
  14. ERGOCALCIFEROL [Concomitant]
     Dosage: 50000UNITS TWICE A WEEK ON MON AND THURS
  15. FENTANYL CITRATE [Concomitant]
     Dosage: 1 PATCHEVERY 3 DAYS
  16. GABAPENTIN [Concomitant]
     Dosage: 600 MG, BID
  17. HYDROCORTISONE [Concomitant]
     Dosage: 10MG TAKE 3 TABLETS AS DIRECTED 2 TABLETS IN AM AND 1 TABLET IN PM
  18. LASIX [Concomitant]
     Dosage: 20 MG, QD
  19. LYRICA [Concomitant]
     Dosage: 150 MG, BID
  20. NORCO [Concomitant]
     Dosage: 325MG EVERY 4 TO 6 HOURS
  21. PHENERGAN [Concomitant]
     Dosage: 12.5 MG, QID
  22. POTASSIUM CHLORIDE [Concomitant]
     Dosage: 1 TABLEL TWICE DAILY
  23. PRENATAL FORMULA [Concomitant]
     Dosage: 1 TABLET DAILY
  24. SEROQUEL [Concomitant]
     Dosage: 1 TABLET BEDTIME THEND/C IN 2 WEEKS
  25. SERTRALINE HYDROCHLORIDE [Concomitant]
     Dosage: 50 MG, QD
  26. STOOL SOFTENER [Concomitant]
     Dosage: 2 CAPSULE DAILY PRN
  27. SYNTHROID [Concomitant]
     Dosage: 125 MG, QD
  28. TPN ELECTROLYTE FTV SOLN [Concomitant]
     Dosage: USE AS DIRECTED
  29. ZOFRAN [Concomitant]
     Dosage: 01 TABS PO BID PRN

REACTIONS (5)
  - ALANINE AMINOTRANSFERASE INCREASED [None]
  - ANALGESIC DRUG LEVEL INCREASED [None]
  - ASPARTATE AMINOTRANSFERASE INCREASED [None]
  - BLOOD ALKALINE PHOSPHATASE INCREASED [None]
  - HEPATIC ENZYME INCREASED [None]
